FAERS Safety Report 12504714 (Version 1)
Quarter: 2016Q2

REPORT INFORMATION
  Report Type: Spontaneous
  Country: BR (occurrence: BR)
  Receive Date: 20160628
  Receipt Date: 20160628
  Transmission Date: 20160815
  Serious: Yes (Other)
  Sender: FDA-Public Use
  Company Number: BR-JNJFOC-20160200734

PATIENT
  Age: 53 Year
  Sex: Female

DRUGS (1)
  1. SIMPONI [Suspect]
     Active Substance: GOLIMUMAB
     Indication: RHEUMATOID ARTHRITIS
     Route: 058
     Dates: start: 20141126

REACTIONS (5)
  - Drug dose omission [Unknown]
  - Insomnia [Unknown]
  - Joint swelling [Unknown]
  - Joint stiffness [Unknown]
  - Pain [Unknown]

NARRATIVE: CASE EVENT DATE: 201511
